FAERS Safety Report 17676166 (Version 1)
Quarter: 2020Q2

REPORT INFORMATION
  Report Type: Report from Study
  Country: MX (occurrence: MX)
  Receive Date: 20200416
  Receipt Date: 20200416
  Transmission Date: 20200714
  Serious: Yes (Other)
  Sender: FDA-Public Use
  Company Number: MX-EMD SERONO-9157675

PATIENT
  Sex: Male
  Weight: 3 kg

DRUGS (1)
  1. REBIF [Suspect]
     Active Substance: INTERFERON BETA-1A
     Indication: MULTIPLE SCLEROSIS

REACTIONS (3)
  - Infection [Recovered/Resolved]
  - Foetal exposure during pregnancy [Unknown]
  - Blood test abnormal [Recovered/Resolved]

NARRATIVE: CASE EVENT DATE: 2020
